FAERS Safety Report 12850283 (Version 2)
Quarter: 2016Q4

REPORT INFORMATION
  Report Type: Spontaneous
  Country: JP (occurrence: JP)
  Receive Date: 20161014
  Receipt Date: 20161115
  Transmission Date: 20170207
  Serious: Yes (Death, Hospitalization)
  Sender: FDA-Public Use
  Company Number: PHJP2016JP029060

PATIENT
  Sex: Female

DRUGS (1)
  1. COMTAN [Suspect]
     Active Substance: ENTACAPONE
     Indication: PARKINSON^S DISEASE
     Dosage: UNK
     Route: 065

REACTIONS (3)
  - Pneumonia aspiration [Unknown]
  - Decreased activity [Unknown]
  - Pneumonia [Fatal]
